FAERS Safety Report 12648773 (Version 4)
Quarter: 2016Q4

REPORT INFORMATION
  Report Type: Spontaneous
  Country: US (occurrence: US)
  Receive Date: 20160812
  Receipt Date: 20161027
  Transmission Date: 20170207
  Serious: No
  Sender: FDA-Public Use
  Company Number: US-PFIZER INC-2016374798

PATIENT
  Age: 63 Year
  Sex: Male

DRUGS (6)
  1. VOLTAREN [Concomitant]
     Active Substance: DICLOFENAC SODIUM
     Dosage: UNK UNK, 1X/DAY (TOPICAL OINTMENT FOR HANDS 2-3 GRAMS 1/DAY)
     Route: 061
  2. TURMERIC [Concomitant]
     Active Substance: TURMERIC
     Dosage: 400 MG, 1X/DAY
  3. MILK THISTLE [Concomitant]
     Active Substance: MILK THISTLE
     Dosage: 300 MG, 1X/DAY
  4. FLOMAX [Concomitant]
     Active Substance: TAMSULOSIN HYDROCHLORIDE
     Dosage: 0.8 MG, 1X/DAY
  5. XELJANZ [Suspect]
     Active Substance: TOFACITINIB CITRATE
     Indication: RHEUMATOID ARTHRITIS
     Dosage: 5 MG, TABLET, TWICE DAILY IN MORNING AND IN EVENING
     Route: 048
     Dates: start: 2015
  6. KRILL OIL [Concomitant]
     Active Substance: DIETARY SUPPLEMENT
     Dosage: 500 MG, 1X/DAY

REACTIONS (3)
  - Poor quality drug administered [Not Recovered/Not Resolved]
  - Acne [Recovering/Resolving]
  - Incorrect product storage [Not Recovered/Not Resolved]
